FAERS Safety Report 17710104 (Version 1)
Quarter: 2020Q2

REPORT INFORMATION
  Report Type: Spontaneous
  Country: FR (occurrence: FR)
  Receive Date: 20200427
  Receipt Date: 20200427
  Transmission Date: 20200714
  Serious: Yes (Hospitalization)
  Sender: FDA-Public Use
  Company Number: FR-SA-2020SA105202

PATIENT
  Age: 70 Year
  Sex: Male
  Weight: 92 kg

DRUGS (2)
  1. FLUINDIONE [Suspect]
     Active Substance: FLUINDIONE
     Indication: PORTAL VEIN THROMBOSIS
     Dosage: 1.5 DF, QD
     Route: 048
     Dates: start: 201706, end: 20181126
  2. LOVENOX [Suspect]
     Active Substance: ENOXAPARIN SODIUM
     Indication: VASCULAR DISORDER PROPHYLAXIS
     Dosage: 1 DF, QD
     Route: 058
     Dates: start: 20181103, end: 20181205

REACTIONS (4)
  - Oedema peripheral [Recovering/Resolving]
  - Rash pustular [Recovering/Resolving]
  - Rash maculo-papular [Recovering/Resolving]
  - Pyrexia [Recovering/Resolving]

NARRATIVE: CASE EVENT DATE: 20181114
